FAERS Safety Report 4326473-0 (Version None)
Quarter: 2004Q1

REPORT INFORMATION
  Report Type: 
  Country: None (occurrence: None)
  Receive Date: 20040322
  Receipt Date: 20040109
  Transmission Date: 20041129
  Serious: No
  Sender: FDA-Public Use
  Company Number: US-JNJFOC-20040101924

PATIENT
  Age: 29 Year
  Sex: Female
  Weight: 70.3075 kg

DRUGS (1)
  1. ORTHO TRI-CYCLEN LO [Suspect]
     Indication: ACNE
     Dosage: 1 DOSE(S), 1 IN 1 DAY, ORAL
     Route: 048

REACTIONS (2)
  - ACNE [None]
  - CONDITION AGGRAVATED [None]
